FAERS Safety Report 5464715-9 (Version None)
Quarter: 2007Q3

REPORT INFORMATION
  Report Type: 
  Country: None (occurrence: None)
  Receive Date: 20070921
  Receipt Date: 20070915
  Transmission Date: 20080115
  Serious: Yes (Other)
  Sender: FDA-Public Use
  Company Number: US-PFIZER INC-2007036051

PATIENT
  Sex: Male

DRUGS (5)
  1. GEODON [Suspect]
     Indication: BIPOLAR DISORDER
     Route: 048
  2. STATINS [Suspect]
     Indication: BLOOD CHOLESTEROL INCREASED
  3. KLONOPIN [Concomitant]
  4. AMBIEN [Concomitant]
  5. DEPAKOTE [Concomitant]

REACTIONS (4)
  - BLOOD CREATININE INCREASED [None]
  - CREATININE RENAL CLEARANCE INCREASED [None]
  - GAIT DISTURBANCE [None]
  - PAIN [None]
